FAERS Safety Report 10949226 (Version 1)
Quarter: 2015Q1

REPORT INFORMATION
  Report Type: Spontaneous
  Country: AU (occurrence: None)
  Receive Date: 20150320
  Receipt Date: 20150320
  Transmission Date: 20150721
  Serious: Yes (Hospitalization, Other)
  Sender: FDA-Public Use
  Company Number: 2015JUB00079

PATIENT
  Age: 72 Year
  Sex: Female

DRUGS (1)
  1. ALENDRONATE (ALENDRONATE) UNKNOWN [Suspect]
     Active Substance: ALENDRONATE SODIUM
     Indication: OSTEOPOROSIS
     Dosage: 1X/WEEK
     Dates: start: 200611, end: 201106

REACTIONS (4)
  - Osteonecrosis [None]
  - Wound [None]
  - Otitis externa [None]
  - Osteomyelitis [None]

NARRATIVE: CASE EVENT DATE: 201004
